FAERS Safety Report 23110280 (Version 1)
Quarter: 2023Q4

REPORT INFORMATION
  Report Type: Spontaneous
  Country: US (occurrence: None)
  Receive Date: 20231024
  Receipt Date: 20231024
  Transmission Date: 20240110
  Serious: Yes (Other)
  Sender: FDA-Public Use
  Company Number: None

PATIENT
  Sex: Female

DRUGS (2)
  1. ORENCIA [Suspect]
     Active Substance: ABATACEPT
     Indication: Rheumatoid arthritis
     Dosage: FREQUENCY : WEEKLY;?
     Route: 058
     Dates: start: 20230221
  2. ORENCIA [Suspect]
     Active Substance: ABATACEPT
     Dosage: FREQUENCY : WEEKLY;?
     Route: 058

REACTIONS (2)
  - Knee operation [None]
  - Intentional dose omission [None]
